FAERS Safety Report 23908194 (Version 1)
Quarter: 2024Q2

REPORT INFORMATION
  Report Type: Spontaneous
  Country: CA (occurrence: CA)
  Receive Date: 20240528
  Receipt Date: 20240528
  Transmission Date: 20240716
  Serious: Yes (Other)
  Sender: FDA-Public Use
  Company Number: CA-PFIZER INC-202400179292

PATIENT
  Sex: Female

DRUGS (1)
  1. TRASTUZUMAB [Suspect]
     Active Substance: TRASTUZUMAB
     Indication: HER2 positive breast cancer
     Dosage: 290 MG, 1 EVERY 3 WEEKS
     Route: 042

REACTIONS (3)
  - Right ventricular failure [Unknown]
  - Toxicity to various agents [Unknown]
  - Off label use [Unknown]
